FAERS Safety Report 9157818 (Version 3)
Quarter: 2013Q2

REPORT INFORMATION
  Report Type: Spontaneous
  Country: FI (occurrence: FI)
  Receive Date: 20130312
  Receipt Date: 20130404
  Transmission Date: 20140414
  Serious: Yes (Hospitalization, Other)
  Sender: FDA-Public Use
  Company Number: FI-009507513-1301FIN007865

PATIENT
  Age: 23 Year
  Sex: Female

DRUGS (1)
  1. MERCILON [Suspect]
     Dosage: NOT USE QUITE CONTINUOUS, BUT NO LONG LASTING INTERRUPTIONS
     Route: 048
     Dates: start: 1997, end: 2012

REACTIONS (5)
  - Intracranial venous sinus thrombosis [Unknown]
  - Crohn^s disease [Not Recovered/Not Resolved]
  - Skin infection [Recovering/Resolving]
  - Hypovolaemia [Unknown]
  - Tinnitus [Unknown]
